FAERS Safety Report 7076680-1 (Version None)
Quarter: 2010Q4

REPORT INFORMATION
  Report Type: 
  Country: None (occurrence: None)
  Receive Date: 20101101
  Receipt Date: 20101021
  Transmission Date: 20110411
  Serious: Yes (Other)
  Sender: FDA-Public Use
  Company Number: US-PFIZER INC-2010133307

PATIENT
  Sex: Male

DRUGS (5)
  1. METFORMIN HCL [Suspect]
     Dosage: UNK
     Route: 065
  2. SERTRALINE HYDROCHLORIDE [Suspect]
     Dosage: UNK
     Route: 065
  3. HYDROCHLOROTHIAZIDE [Suspect]
     Dosage: UNK
     Route: 065
  4. ENALAPRIL MALEATE [Suspect]
     Dosage: UNK
     Route: 065
  5. GARCINIA CAMBOGIA [Suspect]
     Dosage: UNK
     Route: 065

REACTIONS (2)
  - BLOOD DISORDER [None]
  - INTERSTITIAL GRANULOMATOUS DERMATITIS [None]
